FAERS Safety Report 16964254 (Version 1)
Quarter: 2019Q4

REPORT INFORMATION
  Report Type: Spontaneous
  Country: US (occurrence: US)
  Receive Date: 20191025
  Receipt Date: 20191025
  Transmission Date: 20200122
  Serious: No
  Sender: FDA-Public Use
  Company Number: None

PATIENT
  Age: 67 Year
  Sex: Male
  Weight: 94.5 kg

DRUGS (1)
  1. WARFARIN 5MG [Suspect]
     Active Substance: WARFARIN
     Indication: THROMBOSIS
     Dosage: ?          QUANTITY:1 TABLET(S);?
     Route: 048
     Dates: end: 20191016

REACTIONS (3)
  - Myalgia [None]
  - Asthenia [None]
  - Arthralgia [None]

NARRATIVE: CASE EVENT DATE: 20190320
